FAERS Safety Report 9630282 (Version 1)
Quarter: 2013Q4

REPORT INFORMATION
  Report Type: Spontaneous
  Country: US (occurrence: US)
  Receive Date: 20131017
  Receipt Date: 20131017
  Transmission Date: 20140711
  Serious: Yes (Other)
  Sender: FDA-Public Use
  Company Number: US-PFIZER INC-2013292701

PATIENT
  Age: 73 Year
  Sex: Male

DRUGS (5)
  1. GLIBENCLAMIDE [Suspect]
     Indication: TYPE 2 DIABETES MELLITUS
     Dosage: 5 MG, 2X/DAY
     Route: 048
  2. LOSARTAN [Concomitant]
     Dosage: 100 MG, 1X/DAY
  3. METFORMIN [Concomitant]
     Dosage: 1000 MG, 2X/DAY
  4. SIMVASTATIN [Concomitant]
     Dosage: 40 MG, 1X/DAY (AT BEDTIME)
  5. ASPIRIN [Concomitant]
     Dosage: 81 MG, 1X/DAY

REACTIONS (1)
  - Hypersensitivity vasculitis [Recovered/Resolved]
